FAERS Safety Report 5557793-X (Version None)
Quarter: 2007Q4

REPORT INFORMATION
  Report Type: 
  Country: None (occurrence: None)
  Receive Date: 20071214
  Receipt Date: 20071206
  Transmission Date: 20080405
  Serious: Yes (Life-Threatening, Hospitalization)
  Sender: FDA-Public Use
  Company Number: GB-MERCK-0712GBR00027

PATIENT
  Age: 46 Year
  Sex: Male

DRUGS (18)
  1. ZOCOR [Suspect]
     Indication: HYPERLIPIDAEMIA
     Route: 048
     Dates: start: 20071016, end: 20071116
  2. FENOFIBRATE [Suspect]
     Indication: HYPERLIPIDAEMIA
     Route: 048
     Dates: start: 20070911
  3. BECLOMETHASONE DIPROPIONATE [Concomitant]
  4. CITALOPRAM [Concomitant]
     Route: 065
  5. GABAPENTIN [Concomitant]
     Route: 065
  6. DEXTROSE [Concomitant]
     Route: 048
  7. INFLUENZA VIRUS VACCINE (UNSPECIFIED) [Concomitant]
     Route: 065
     Dates: start: 20071024, end: 20071024
  8. INSULIN HUMAN, ISOPHANE [Concomitant]
     Route: 065
  9. IPRATROPIUM BROMIDE [Concomitant]
  10. LANSOPRAZOLE [Concomitant]
     Route: 065
  11. LISINOPRIL [Concomitant]
     Route: 065
  12. METFORMIN [Concomitant]
     Route: 065
  13. INSULIN ASPART [Concomitant]
     Route: 065
  14. OLIVE OIL [Concomitant]
     Route: 065
  15. ACETAMINOPHEN [Concomitant]
     Route: 065
  16. PIOGLITAZONE HYDROCHLORIDE [Concomitant]
     Route: 065
  17. ALBUTEROL [Concomitant]
  18. TRAMADOL HYDROCHLORIDE [Concomitant]
     Route: 065

REACTIONS (6)
  - ARTHRITIS BACTERIAL [None]
  - BLOOD CREATINE PHOSPHOKINASE INCREASED [None]
  - DRUG INTERACTION [None]
  - INFLUENZA LIKE ILLNESS [None]
  - JOINT SWELLING [None]
  - MYOSITIS [None]
